FAERS Safety Report 21198329 (Version 2)
Quarter: 2022Q3

REPORT INFORMATION
  Report Type: Spontaneous
  Country: US (occurrence: US)
  Receive Date: 20220811
  Receipt Date: 20220824
  Transmission Date: 20221026
  Serious: Yes (Other)
  Sender: FDA-Public Use
  Company Number: US-MLMSERVICE-20220722-3687196-1

PATIENT
  Age: 72 Year
  Sex: Male
  Weight: 166 kg

DRUGS (3)
  1. AMIODARONE HYDROCHLORIDE [Suspect]
     Active Substance: AMIODARONE HYDROCHLORIDE
     Indication: Atrial fibrillation
     Dosage: 200 MILLIGRAM, ONCE A DAY (AT A MAINTENANCE DOSE)
     Route: 048
  2. DIGOXIN [Concomitant]
     Active Substance: DIGOXIN
     Indication: Product used for unknown indication
     Dosage: UNK
     Route: 065
  3. METOPROLOL [Concomitant]
     Active Substance: METOPROLOL
     Indication: Atrial fibrillation
     Dosage: UNK
     Route: 065

REACTIONS (3)
  - Skin discolouration [Recovered/Resolved]
  - Cyanosis [Recovered/Resolved]
  - Incorrect product administration duration [Recovered/Resolved]
